FAERS Safety Report 20180983 (Version 1)
Quarter: 2021Q4

REPORT INFORMATION
  Report Type: Spontaneous
  Country: US (occurrence: None)
  Receive Date: 20211213
  Receipt Date: 20211213
  Transmission Date: 20220303
  Serious: No
  Sender: FDA-Public Use
  Company Number: None

PATIENT
  Age: 71 Year
  Sex: Male
  Weight: 69.75 kg

DRUGS (2)
  1. CARBIDOPA AND LEVODOPA [Suspect]
     Active Substance: CARBIDOPA\LEVODOPA
     Indication: Parkinson^s disease
     Dosage: FREQUENCY : EVERY 8 HOURS;?
     Route: 048
     Dates: end: 20211205
  2. DUTASTERIDE [Concomitant]
     Active Substance: DUTASTERIDE

REACTIONS (3)
  - Vomiting [None]
  - Bed rest [None]
  - Therapy change [None]

NARRATIVE: CASE EVENT DATE: 20211129
